FAERS Safety Report 4964639-7 (Version None)
Quarter: 2006Q2

REPORT INFORMATION
  Report Type: 
  Country: None (occurrence: None)
  Receive Date: 20060406
  Receipt Date: 20051104
  Transmission Date: 20061013
  Serious: Yes (Hospitalization, Other)
  Sender: FDA-Public Use
  Company Number: US-MERCK-0511USA01038

PATIENT
  Age: 70 Year
  Sex: Female
  Weight: 66 kg

DRUGS (5)
  1. VIOXX [Suspect]
     Indication: OSTEOARTHRITIS
     Route: 048
     Dates: start: 20020201, end: 20040228
  2. DIOVAN [Concomitant]
     Indication: HYPERTENSION
     Route: 065
     Dates: start: 20020101
  3. PERCOCET [Concomitant]
     Indication: PAIN
     Route: 065
     Dates: start: 19970101
  4. PLAVIX [Concomitant]
     Indication: CARDIAC DISORDER
     Route: 065
     Dates: start: 20020101
  5. ZOCOR [Concomitant]
     Indication: HYPERCHOLESTEROLAEMIA
     Route: 065
     Dates: start: 20030101

REACTIONS (6)
  - BLOOD CHOLESTEROL INCREASED [None]
  - CEREBROVASCULAR ACCIDENT [None]
  - DEEP VEIN THROMBOSIS [None]
  - GLAUCOMA [None]
  - HYPERTENSION [None]
  - THROMBOSIS [None]
